FAERS Safety Report 6123179-2 (Version None)
Quarter: 2009Q1

REPORT INFORMATION
  Report Type: 
  Country: None (occurrence: None)
  Receive Date: 20090318
  Receipt Date: 20090313
  Transmission Date: 20090719
  Serious: Yes (Death, Other)
  Sender: FDA-Public Use
  Company Number: PHHY2008JP33118

PATIENT
  Sex: Female

DRUGS (3)
  1. DIOVAN [Suspect]
     Indication: HYPERTENSION
     Dosage: 80 MG, QD
     Route: 048
     Dates: start: 20071010, end: 20080601
  2. PERDIPINE-LA [Concomitant]
     Indication: HYPERTENSION
     Dosage: UNK
     Route: 048
     Dates: start: 20071010, end: 20080628
  3. NOVOLIN N [Concomitant]
     Dosage: UNK
     Dates: start: 20071010, end: 20080604

REACTIONS (2)
  - BLOOD GLUCOSE INCREASED [None]
  - PUTAMEN HAEMORRHAGE [None]
